FAERS Safety Report 6938501-4 (Version None)
Quarter: 2010Q3

REPORT INFORMATION
  Report Type: 
  Country: None (occurrence: None)
  Receive Date: 20100824
  Receipt Date: 20100817
  Transmission Date: 20110219
  Serious: Yes (Hospitalization)
  Sender: FDA-Public Use
  Company Number: US-SANOFI-AVENTIS-2010SA048990

PATIENT
  Age: 74 Year
  Sex: Male

DRUGS (2)
  1. LANTUS [Suspect]
     Dosage: DOSE:8 UNIT(S)
     Route: 058
     Dates: start: 20090101, end: 20090101
  2. SOLOSTAR [Suspect]
     Dosage: DOSE:8 UNIT(S)
     Route: 058
     Dates: start: 20090101, end: 20090101

REACTIONS (3)
  - BLOOD GLUCOSE DECREASED [None]
  - CHEST PAIN [None]
  - HYPERHIDROSIS [None]
